FAERS Safety Report 8439977-6 (Version None)
Quarter: 2012Q2

REPORT INFORMATION
  Report Type: 
  Country: None (occurrence: None)
  Receive Date: 20120615
  Receipt Date: 20120611
  Transmission Date: 20120825
  Serious: Yes (Death, Life-Threatening, Hospitalization)
  Sender: FDA-Public Use
  Company Number: FR-ASTRAZENECA-2012SE32871

PATIENT
  Age: 21606 Day
  Sex: Male

DRUGS (15)
  1. QUETIAPINE FUMARATE [Suspect]
     Dosage: 4 TABLETS ONCE
     Route: 048
     Dates: start: 20120331, end: 20120331
  2. VASTAREL [Concomitant]
     Route: 048
  3. LEXOMIL [Concomitant]
     Route: 048
     Dates: end: 20120331
  4. LEXOMIL [Concomitant]
     Route: 048
     Dates: start: 20120401, end: 20120401
  5. QUETIAPINE FUMARATE [Suspect]
     Indication: DEPRESSION
     Route: 048
     Dates: start: 20120328, end: 20120401
  6. QUETIAPINE FUMARATE [Suspect]
     Dosage: 4 TABLETS ONCE
     Route: 048
     Dates: start: 20120331, end: 20120331
  7. DI-HYDRAN [Concomitant]
     Indication: EPILEPSY
     Route: 048
  8. PHENOBARBITAL TAB [Concomitant]
     Indication: EPILEPSY
     Route: 048
  9. ESCITALOPRAM [Concomitant]
     Indication: DEPRESSION
     Route: 048
  10. QUETIAPINE FUMARATE [Suspect]
     Route: 048
     Dates: start: 20120402
  11. LEXOMIL [Concomitant]
     Route: 048
     Dates: start: 20120402
  12. QUETIAPINE FUMARATE [Suspect]
     Indication: ABNORMAL BEHAVIOUR
     Route: 048
     Dates: start: 20120328, end: 20120401
  13. QUETIAPINE FUMARATE [Suspect]
     Route: 048
     Dates: start: 20120402
  14. PERMIXON [Concomitant]
     Route: 048
  15. PANTOPRAZOLE [Concomitant]
     Route: 048

REACTIONS (9)
  - SUICIDAL IDEATION [None]
  - BRAIN DEATH [None]
  - PULMONARY EMBOLISM [None]
  - FALL [None]
  - CARDIO-RESPIRATORY ARREST [None]
  - CRANIOCEREBRAL INJURY [None]
  - STATUS EPILEPTICUS [None]
  - AGITATION [None]
  - INTENTIONAL DRUG MISUSE [None]
